FAERS Safety Report 12961260 (Version 4)
Quarter: 2019Q1

REPORT INFORMATION
  Report Type: Spontaneous
  Country: US (occurrence: US)
  Receive Date: 20161121
  Receipt Date: 20190110
  Transmission Date: 20190417
  Serious: No
  Sender: FDA-Public Use
  Company Number: US-PFIZER INC-2016535223

PATIENT
  Age: 14 Year
  Sex: Male
  Weight: 67 kg

DRUGS (1)
  1. GENOTROPIN [Suspect]
     Active Substance: SOMATROPIN
     Indication: GROWTH HORMONE DEFICIENCY
     Dosage: 2.6 MG, DAILY
     Dates: start: 20161026

REACTIONS (3)
  - Insulin-like growth factor increased [Unknown]
  - Injection site pain [Recovered/Resolved]
  - Thyroxine decreased [Unknown]

NARRATIVE: CASE EVENT DATE: 20161115
